FAERS Safety Report 7587632-7 (Version None)
Quarter: 2011Q3

REPORT INFORMATION
  Report Type: 
  Country: None (occurrence: None)
  Receive Date: 20110704
  Receipt Date: 20110627
  Transmission Date: 20111222
  Serious: Yes (Other)
  Sender: FDA-Public Use
  Company Number: PHHO2011US03000

PATIENT
  Sex: Female

DRUGS (2)
  1. GILENYA [Suspect]
     Dosage: 0.5 MG, QD
     Route: 048
  2. GILENYA [Suspect]
     Indication: MULTIPLE SCLEROSIS
     Dosage: DOSE BLINDED
     Route: 048

REACTIONS (1)
  - NASOPHARYNGITIS [None]
